FAERS Safety Report 21629297 (Version 1)
Quarter: 2022Q4

REPORT INFORMATION
  Report Type: Spontaneous
  Country: CN (occurrence: CN)
  Receive Date: 20221122
  Receipt Date: 20221122
  Transmission Date: 20230113
  Serious: Yes (Hospitalization)
  Sender: FDA-Public Use
  Company Number: CN-PFIZER INC-PV202200106102

PATIENT
  Age: 71 Year
  Sex: Male

DRUGS (2)
  1. CEFOPERAZONE SODIUM\SULBACTAM SODIUM [Suspect]
     Active Substance: CEFOPERAZONE SODIUM\SULBACTAM SODIUM
     Indication: Pneumonia
     Dosage: 3 G, 3X/DAY
     Route: 041
     Dates: start: 20221008, end: 20221023
  2. TYGACIL [Suspect]
     Active Substance: TIGECYCLINE
     Indication: Pneumonia
     Dosage: 50 MG, 2X/DAY
     Route: 041
     Dates: start: 20221008, end: 20221023

REACTIONS (2)
  - Coagulopathy [Recovering/Resolving]
  - Off label use [Unknown]

NARRATIVE: CASE EVENT DATE: 20221008
